FAERS Safety Report 9715813 (Version 2)
Quarter: 2014Q1

REPORT INFORMATION
  Report Type: Report from Study
  Country: CO (occurrence: CO)
  Receive Date: 20131127
  Receipt Date: 20140228
  Transmission Date: 20141002
  Serious: Yes (Death, Life-Threatening)
  Sender: FDA-Public Use
  Company Number: CO-SA-2013SA120013

PATIENT
  Age: 74 Year
  Sex: Male

DRUGS (3)
  1. APIDRA [Suspect]
     Indication: DIABETES MELLITUS
     Dosage: DOSE:15 UNIT(S)
     Route: 058
     Dates: start: 2003, end: 20140112
  2. TRAMADOL [Concomitant]
     Indication: CANCER PAIN
     Route: 048
     Dates: end: 20140112
  3. MULTIVITAMINS [Concomitant]

REACTIONS (5)
  - Cardio-respiratory arrest [Fatal]
  - Colon cancer [Not Recovered/Not Resolved]
  - Asthenia [Not Recovered/Not Resolved]
  - Asthenia [Not Recovered/Not Resolved]
  - Asthenia [Not Recovered/Not Resolved]
